FAERS Safety Report 6556226-4 (Version None)
Quarter: 2010Q1

REPORT INFORMATION
  Report Type: 
  Country: None (occurrence: None)
  Receive Date: 20100128
  Receipt Date: 20090727
  Transmission Date: 20100710
  Serious: Yes (Hospitalization)
  Sender: FDA-Public Use
  Company Number: US-TEVA-203541USA

PATIENT
  Sex: Male

DRUGS (3)
  1. COPAXONE [Suspect]
     Indication: MULTIPLE SCLEROSIS
     Route: 058
  2. BETASERON [Suspect]
  3. AVONEX [Suspect]
     Route: 030
     Dates: end: 20070701

REACTIONS (1)
  - INFLUENZA LIKE ILLNESS [None]
